FAERS Safety Report 9155473 (Version 1)
Quarter: 2013Q1

REPORT INFORMATION
  Report Type: Spontaneous
  Country: GB (occurrence: GB)
  Receive Date: 20130311
  Receipt Date: 20130311
  Transmission Date: 20140127
  Serious: Yes (Hospitalization)
  Sender: FDA-Public Use
  Company Number: GB-ELI_LILLY_AND_COMPANY-GB201212003083

PATIENT
  Sex: Male

DRUGS (4)
  1. TERIPARATIDE [Suspect]
     Dosage: UNK, UNKNOWN
     Route: 058
     Dates: start: 201110
  2. TOLTERODINE [Concomitant]
     Dosage: UNK, UNKNOWN
     Route: 065
  3. ADCAL D3 [Concomitant]
     Dosage: UNK, UNKNOWN
     Route: 065
  4. SERETIDE MDI [Concomitant]
     Dosage: UNK, UNKNOWN
     Route: 065

REACTIONS (1)
  - Cerebrovascular accident [Recovering/Resolving]
